FAERS Safety Report 5914256-7 (Version None)
Quarter: 2008Q4

REPORT INFORMATION
  Report Type: 
  Country: None (occurrence: None)
  Receive Date: 20081009
  Receipt Date: 20080930
  Transmission Date: 20090506
  Serious: No
  Sender: FDA-Public Use
  Company Number: US-ELI_LILLY_AND_COMPANY-US200810000086

PATIENT
  Sex: Female

DRUGS (12)
  1. CYMBALTA [Suspect]
     Indication: NEUROPATHY PERIPHERAL
     Dosage: 30 MG, UNK
     Dates: start: 20080401
  2. CYMBALTA [Suspect]
     Dosage: 60 MG, UNK
     Dates: start: 20080401
  3. CYMBALTA [Suspect]
     Dosage: 30 MG, UNK
     Dates: start: 20080101
  4. CYMBALTA [Suspect]
     Dosage: 20 MG, UNK
     Dates: start: 20080101
  5. LOTREL [Concomitant]
  6. ATENOLOL [Concomitant]
  7. LODINE [Concomitant]
  8. ZOCOR [Concomitant]
  9. PREDNISONE TAB [Concomitant]
  10. FOLIC ACID [Concomitant]
  11. VITAMINS NOS [Concomitant]
  12. COUMADIN [Concomitant]

REACTIONS (5)
  - ANOREXIA [None]
  - BILIRUBIN URINE [None]
  - CHROMATURIA [None]
  - FAECES PALE [None]
  - NAUSEA [None]
